FAERS Safety Report 5087710-0 (Version None)
Quarter: 2006Q3

REPORT INFORMATION
  Report Type: 
  Country: None (occurrence: None)
  Receive Date: 20060731
  Receipt Date: 20060426
  Transmission Date: 20061208
  Serious: Yes (Other)
  Sender: FDA-Public Use
  Company Number: 200612240BWH

PATIENT
  Sex: Female
  Weight: 108.8633 kg

DRUGS (11)
  1. AVELOX [Suspect]
     Indication: MORAXELLA INFECTION
     Dosage: 400 MG, QD, ORAL
     Route: 048
     Dates: start: 20060307, end: 20060320
  2. AVELOX [Suspect]
     Indication: RHINITIS
     Dosage: 400 MG, QD, ORAL
     Route: 048
     Dates: start: 20060307, end: 20060320
  3. ADVAIR DISKUS 100/50 [Concomitant]
  4. PRIMADEX [Concomitant]
  5. ASTELIN [Concomitant]
  6. DIOVAN [Concomitant]
  7. MUCINEX [Concomitant]
  8. NEXIUM [Concomitant]
  9. SINGULAIR [Concomitant]
  10. SYNTHROID [Concomitant]
  11. VYTORIN [Concomitant]

REACTIONS (1)
  - CONVULSION [None]
